FAERS Safety Report 15524123 (Version 1)
Quarter: 2018Q4

REPORT INFORMATION
  Report Type: Report from Study
  Country: US (occurrence: US)
  Receive Date: 20181019
  Receipt Date: 20181019
  Transmission Date: 20190205
  Serious: Yes (Hospitalization)
  Sender: FDA-Public Use
  Company Number: US-BAYER-2018-162953

PATIENT
  Age: 61 Year
  Sex: Female

DRUGS (4)
  1. REMODULIN [Suspect]
     Active Substance: TREPROSTINIL
     Dosage: UNK
  2. ADEMPAS [Suspect]
     Active Substance: RIOCIGUAT
     Indication: PULMONARY ARTERIAL HYPERTENSION
     Dosage: 1.0 MG, TID
     Route: 048
     Dates: start: 20180214
  3. REMODULIN [Suspect]
     Active Substance: TREPROSTINIL
     Dosage: 28 NKM
     Dates: start: 201808, end: 20180826
  4. REMODULIN [Suspect]
     Active Substance: TREPROSTINIL
     Dosage: 29 NKM
     Dates: start: 20180827

REACTIONS (3)
  - Dizziness [None]
  - Headache [None]
  - Hospitalisation [None]

NARRATIVE: CASE EVENT DATE: 201808
